FAERS Safety Report 4767829-1 (Version None)
Quarter: 2005Q3

REPORT INFORMATION
  Report Type: 
  Country: None (occurrence: None)
  Receive Date: 20050913
  Receipt Date: 20050901
  Transmission Date: 20060218
  Serious: Yes (Other)
  Sender: FDA-Public Use
  Company Number: MEDI-0003664

PATIENT
  Age: 84 Year
  Sex: Female
  Weight: 75.2971 kg

DRUGS (8)
  1. ETHYOL [Suspect]
     Indication: RADIOTHERAPY
     Dosage: 500 MILLIGRAMS DIVIDED INTO TWO INJECTIONS, 5 IN 1 WK, SUBCUTANEOUS
     Route: 058
     Dates: start: 20050727, end: 20050829
  2. ETHYOL [Suspect]
  3. RADIATION THERAPY [Concomitant]
  4. SALAGEN [Concomitant]
  5. SYNTHROID [Concomitant]
  6. DECADRON [Concomitant]
  7. MICLODRINE [Concomitant]
  8. ZANTAC [Concomitant]

REACTIONS (14)
  - CONSTIPATION [None]
  - ERYTHEMA [None]
  - FEELING HOT [None]
  - HEADACHE [None]
  - INJECTION SITE ERYTHEMA [None]
  - INJECTION SITE WARMTH [None]
  - MALAISE [None]
  - MUCOSAL INFLAMMATION [None]
  - NAUSEA [None]
  - RASH GENERALISED [None]
  - RASH MACULAR [None]
  - RASH PRURITIC [None]
  - SWELLING FACE [None]
  - VOMITING [None]
